FAERS Safety Report 14399650 (Version 1)
Quarter: 2018Q1

REPORT INFORMATION
  Report Type: Spontaneous
  Country: US (occurrence: US)
  Receive Date: 20180117
  Receipt Date: 20180117
  Transmission Date: 20180509
  Serious: No
  Sender: FDA-Public Use
  Company Number: US-JNJFOC-20171223784

PATIENT
  Sex: Female
  Weight: 68.04 kg

DRUGS (1)
  1. SIMPONI [Suspect]
     Active Substance: GOLIMUMAB
     Indication: COLITIS ULCERATIVE
     Route: 058
     Dates: start: 201710

REACTIONS (3)
  - Injection site bruising [Unknown]
  - Device malfunction [Unknown]
  - Underdose [Unknown]

NARRATIVE: CASE EVENT DATE: 2017
